FAERS Safety Report 5148638-0 (Version None)
Quarter: 2006Q4

REPORT INFORMATION
  Report Type: 
  Country: None (occurrence: None)
  Receive Date: 20061107
  Receipt Date: 20061024
  Transmission Date: 20070319
  Serious: Yes (Death)
  Sender: FDA-Public Use
  Company Number: PAR_1028_2006

PATIENT
  Age: 40 Year

DRUGS (3)
  1. TEMAZEPAM [Suspect]
     Dosage: DF PO
     Route: 048
  2. DILTIAZEM HCL [Suspect]
     Dosage: DF PO
     Route: 048
  3. ATENOLOL [Suspect]
     Dosage: DF PO
     Route: 048

REACTIONS (1)
  - THERAPEUTIC AGENT TOXICITY [None]
